FAERS Safety Report 15156887 (Version 1)
Quarter: 2018Q3

REPORT INFORMATION
  Report Type: Spontaneous
  Country: US (occurrence: US)
  Receive Date: 20180718
  Receipt Date: 20180718
  Transmission Date: 20181010
  Serious: No
  Sender: FDA-Public Use
  Company Number: US-CIPLA LTD.-2018US02941

PATIENT

DRUGS (4)
  1. WARFARIN [Suspect]
     Active Substance: WARFARIN
     Dosage: 7.5 MG, 4 TIMES PER WEEK
     Route: 048
     Dates: start: 2002
  2. WARFARIN [Suspect]
     Active Substance: WARFARIN
     Dosage: 5 MG, TWO TIMES A WEEK
     Route: 048
     Dates: start: 20171211
  3. WARFARIN [Suspect]
     Active Substance: WARFARIN
     Dosage: 7.5 MG, 5 TIMES A WEEK
     Route: 048
     Dates: start: 20171211
  4. WARFARIN [Suspect]
     Active Substance: WARFARIN
     Indication: ANTICOAGULANT THERAPY
     Dosage: 5 MG, TID FOR 3 DAYS A WEEK
     Route: 048
     Dates: start: 2002

REACTIONS (4)
  - Product taste abnormal [Not Recovered/Not Resolved]
  - Product physical issue [Not Recovered/Not Resolved]
  - International normalised ratio decreased [Not Recovered/Not Resolved]
  - Drug ineffective [Unknown]
